FAERS Safety Report 6909299-0 (Version None)
Quarter: 2010Q3

REPORT INFORMATION
  Report Type: 
  Country: None (occurrence: None)
  Receive Date: 20100805
  Receipt Date: 20100726
  Transmission Date: 20110219
  Serious: Yes (Other)
  Sender: FDA-Public Use
  Company Number: PHHY2009FR03518

PATIENT
  Sex: Male

DRUGS (10)
  1. GLEEVEC [Suspect]
     Indication: ACUTE LYMPHOCYTIC LEUKAEMIA
     Dosage: UNK
     Dates: start: 20060301
  2. GLEEVEC [Suspect]
     Dosage: 400 MG DAILY
     Dates: start: 20071201, end: 20090201
  3. METHOTREXATE [Concomitant]
     Dosage: UNK
     Dates: start: 20081107, end: 20081204
  4. PURINETHOL [Concomitant]
     Dosage: 50 MG
     Dates: start: 20081107, end: 20081204
  5. ZELITREX                                /DEN/ [Concomitant]
     Dosage: 1 DF, QD
  6. PRIMPERAN TAB [Concomitant]
     Dosage: 1 DF
  7. PENTACARINAT ^AVENTIS^ [Concomitant]
     Dosage: 300 MG
  8. PRETERAX [Concomitant]
     Indication: HYPERTENSION
  9. SERESTA [Concomitant]
     Dosage: 1 DF, BID
     Route: 048
  10. PREVISCAN [Concomitant]
     Indication: THROMBOSIS
     Dosage: UNK
     Route: 048
     Dates: start: 20061111

REACTIONS (9)
  - ACUTE LYMPHOCYTIC LEUKAEMIA RECURRENT [None]
  - BLINDNESS [None]
  - LEUKOARAIOSIS [None]
  - MACULAR DEGENERATION [None]
  - METASTASES TO MENINGES [None]
  - OPTIC ISCHAEMIC NEUROPATHY [None]
  - THROMBOSIS [None]
  - VISUAL ACUITY REDUCED [None]
  - VISUAL FIELD DEFECT [None]
